FAERS Safety Report 4820001-9 (Version None)
Quarter: 2005Q4

REPORT INFORMATION
  Report Type: 
  Country: None (occurrence: None)
  Receive Date: 20051031
  Receipt Date: 20050830
  Transmission Date: 20060501
  Serious: No
  Sender: FDA-Public Use
  Company Number: 2005PV001337

PATIENT
  Age: 62 Year
  Sex: Female
  Weight: 77.1115 kg

DRUGS (12)
  1. SYMLIN [Suspect]
     Indication: DIABETES MELLITUS INSULIN-DEPENDENT
     Dosage: 24 MCG; QD; SC; SEE IMAGE
     Route: 058
     Dates: start: 20050808, end: 20050801
  2. SYMLIN [Suspect]
     Indication: DIABETES MELLITUS INSULIN-DEPENDENT
     Dosage: 24 MCG; QD; SC; SEE IMAGE
     Route: 058
     Dates: start: 20050801
  3. SYMLIN [Suspect]
     Indication: DIABETES MELLITUS INSULIN-DEPENDENT
     Dosage: 24 MCG; QD; SC; SEE IMAGE
     Route: 058
     Dates: start: 20050801
  4. SYNTHROID [Concomitant]
  5. VASOTEC [Concomitant]
  6. LEXAPRO [Concomitant]
  7. ADVAIR DISKUS 100/50 [Concomitant]
  8. SINGULAIR [Concomitant]
  9. NASONEX [Concomitant]
  10. VITAMINS [Concomitant]
  11. CALCIUM GLUCONATE [Concomitant]
  12. INSULIN [Concomitant]

REACTIONS (3)
  - BLOOD GLUCOSE FLUCTUATION [None]
  - BRONCHITIS [None]
  - DECREASED APPETITE [None]
